FAERS Safety Report 8980104 (Version 2)
Quarter: 2013Q1

REPORT INFORMATION
  Report Type: Spontaneous
  Country: FR (occurrence: FR)
  Receive Date: 20121221
  Receipt Date: 20130125
  Transmission Date: 20140127
  Serious: Yes (Other)
  Sender: FDA-Public Use
  Company Number: PHHY2012FR117448

PATIENT
  Age: 81 Year
  Sex: Female
  Weight: 87 kg

DRUGS (8)
  1. EXELON PATCH [Suspect]
     Indication: DEMENTIA ALZHEIMER^S TYPE
     Dosage: 9.5 MG, QD
     Route: 062
     Dates: start: 20080708
  2. BISOPROLOL [Concomitant]
  3. KARDEGIC [Concomitant]
  4. OROCAL [Concomitant]
  5. EFFEXOR [Concomitant]
  6. STRESAM [Concomitant]
  7. POLY-KARAYA [Concomitant]
  8. AMLOR [Concomitant]
     Dosage: UNK UKN, UNK

REACTIONS (2)
  - Hypertensive crisis [Recovered/Resolved]
  - Drug administration error [Unknown]
